FAERS Safety Report 5170845-1 (Version None)
Quarter: 2006Q4

REPORT INFORMATION
  Report Type: 
  Country: None (occurrence: None)
  Receive Date: 20061213
  Receipt Date: 20061116
  Transmission Date: 20070319
  Serious: Yes (Hospitalization)
  Sender: FDA-Public Use
  Company Number: US-AVENTIS-200621851GDDC

PATIENT
  Age: 62 Year
  Sex: Male
  Weight: 190 kg

DRUGS (10)
  1. NPH INSULIN [Suspect]
     Route: 058
     Dates: start: 20011108
  2. LASIX [Suspect]
     Route: 048
     Dates: start: 20060209, end: 20061011
  3. GLUCOPHAGE [Suspect]
     Indication: DIABETES MELLITUS INSULIN-DEPENDENT
     Dates: start: 19820101, end: 20061011
  4. DIOVANE [Suspect]
     Indication: HYPERTENSION
     Dosage: DOSE: 160/12.5
     Route: 048
     Dates: start: 20011201, end: 20061011
  5. LEVOTHYROXINE SODIUM [Concomitant]
     Indication: HYPERTHYROIDISM
     Route: 048
     Dates: start: 20030527
  6. TOPROL-XL [Concomitant]
     Indication: HYPERTENSION
     Route: 048
     Dates: start: 20010601
  7. ALLOPURINOL [Concomitant]
     Indication: GOUT
     Route: 048
     Dates: start: 19860101
  8. NORVASC [Concomitant]
     Indication: HYPERTENSION
     Route: 048
  9. ASPIRIN [Concomitant]
     Indication: CORONARY ARTERY DISEASE
     Route: 048
     Dates: start: 20000101
  10. PROTONIX [Concomitant]
     Indication: GASTROOESOPHAGEAL REFLUX DISEASE
     Route: 048
     Dates: start: 20020101

REACTIONS (6)
  - ASTHENIA [None]
  - BRADYCARDIA [None]
  - DIZZINESS [None]
  - DYSPNOEA [None]
  - HYPERKALAEMIA [None]
  - RENAL FAILURE [None]
